FAERS Safety Report 8962501 (Version 1)
Quarter: 2012Q4

REPORT INFORMATION
  Report Type: 
  Country: US (occurrence: US)
  Receive Date: 20121213
  Receipt Date: 20121213
  Transmission Date: 20130627
  Serious: Yes (Hospitalization)
  Sender: FDA-Public Use
  Company Number: US-MYLANLABS-2012S1024857

PATIENT
  Age: 53 Year
  Sex: Female

DRUGS (5)
  1. WARFARIN [Suspect]
     Dosage: a single 5 mg dose
     Route: 065
  2. WARFARIN [Suspect]
     Dosage: 4 mg on postoperative day 4
     Route: 065
  3. HEPARIN [Suspect]
     Dosage: 20,000 units
     Route: 065
  4. HEPARIN [Suspect]
     Dosage: heparin drip started postoperative day 4
     Route: 042
  5. PROTAMINE SULFATE [Concomitant]
     Indication: HEPARIN NEUTRALISATION THERAPY
     Route: 065

REACTIONS (2)
  - Breast necrosis [Recovering/Resolving]
  - Heparin-induced thrombocytopenia [Unknown]
